FAERS Safety Report 18594222 (Version 2)
Quarter: 2020Q4

REPORT INFORMATION
  Report Type: Spontaneous
  Country: PL (occurrence: PL)
  Receive Date: 20201209
  Receipt Date: 20201217
  Transmission Date: 20210114
  Serious: Yes (Hospitalization, Other)
  Sender: FDA-Public Use
  Company Number: PL-PFIZER INC-2020482675

PATIENT
  Age: 49 Year
  Sex: Male

DRUGS (3)
  1. PEGVISOMANT [Suspect]
     Active Substance: PEGVISOMANT
     Dosage: 15 MG, DAILY
     Dates: start: 200502, end: 201004
  2. PEGVISOMANT [Suspect]
     Active Substance: PEGVISOMANT
     Dosage: 15 MG, EVERY SECOND DAY
     Dates: start: 201006
  3. PEGVISOMANT [Suspect]
     Active Substance: PEGVISOMANT
     Dosage: 10MG/DAY
     Dates: start: 202007

REACTIONS (5)
  - Off label use [Unknown]
  - Factor V Leiden mutation [Unknown]
  - Pulmonary embolism [Unknown]
  - Duodenal ulcer [Unknown]
  - Therapeutic product effect incomplete [Unknown]

NARRATIVE: CASE EVENT DATE: 200807
